FAERS Safety Report 21042475 (Version 1)
Quarter: 2022Q3

REPORT INFORMATION
  Report Type: Spontaneous
  Country: US (occurrence: US)
  Receive Date: 20220705
  Receipt Date: 20220705
  Transmission Date: 20221027
  Serious: Yes (Other)
  Sender: FDA-Public Use
  Company Number: US-CHEPLA-2022005651

PATIENT
  Age: 36 Year
  Sex: Female

DRUGS (7)
  1. CLONAZEPAM [Suspect]
     Active Substance: CLONAZEPAM
     Indication: Mania
  2. LURASIDONE [Suspect]
     Active Substance: LURASIDONE
     Dosage: (INCREASED FROM 80 MG TO 120 MG DAILY ONE MONTH PRIOR)
  3. BUSPIRONE [Suspect]
     Active Substance: BUSPIRONE HYDROCHLORIDE
     Dosage: FREQUENCY: TWICE DAILY
  4. SERTRALINE [Suspect]
     Active Substance: SERTRALINE HYDROCHLORIDE
  5. OLANZAPINE [Suspect]
     Active Substance: OLANZAPINE
     Indication: Mania
  6. ONDANSETRON [Suspect]
     Active Substance: ONDANSETRON
  7. CAFFEINE [Suspect]
     Active Substance: CAFFEINE
     Dosage: CAFFEINE PILLS

REACTIONS (4)
  - Serotonin syndrome [Recovered/Resolved]
  - Maternal exposure during pregnancy [Recovered/Resolved]
  - Drug withdrawal syndrome [Unknown]
  - Product use in unapproved indication [Not Recovered/Not Resolved]
